FAERS Safety Report 5325027-7 (Version None)
Quarter: 2007Q2

REPORT INFORMATION
  Report Type: 
  Country: None (occurrence: None)
  Receive Date: 20070510
  Receipt Date: 20070510
  Transmission Date: 20071010
  Serious: Yes (Other)
  Sender: FDA-Public Use
  Company Number: None

PATIENT
  Age: 55 Year
  Sex: Male
  Weight: 102.0593 kg

DRUGS (1)
  1. AMITIZA [Suspect]
     Indication: IRRITABLE BOWEL SYNDROME
     Dosage: 1 TABLET DAILY PO
     Route: 048
     Dates: start: 20070409, end: 20070416

REACTIONS (4)
  - DIARRHOEA [None]
  - PRURITUS [None]
  - RASH GENERALISED [None]
  - URTICARIA GENERALISED [None]
